FAERS Safety Report 6260642-8 (Version None)
Quarter: 2009Q3

REPORT INFORMATION
  Report Type: 
  Country: None (occurrence: None)
  Receive Date: 20090706
  Receipt Date: 20090622
  Transmission Date: 20100115
  Serious: Yes (Other)
  Sender: FDA-Public Use
  Company Number: 2009AL004194

PATIENT
  Age: 63 Year
  Sex: Female

DRUGS (1)
  1. SPIRONOLACTONE [Suspect]
     Indication: HYPERTENSION
     Dosage: QD
     Dates: start: 20070501

REACTIONS (1)
  - BREAST CANCER FEMALE [None]
